FAERS Safety Report 6181472-1 (Version None)
Quarter: 2009Q2

REPORT INFORMATION
  Report Type: 
  Country: None (occurrence: None)
  Receive Date: 20090501
  Receipt Date: 20090415
  Transmission Date: 20091009
  Serious: Yes (Other)
  Sender: FDA-Public Use
  Company Number: PAR_02954_2009

PATIENT
  Sex: Female

DRUGS (14)
  1. IBUPROFEN [Suspect]
     Indication: DRUG USE FOR UNKNOWN INDICATION
     Dosage: (600 MG TID, [1-1-1])
     Dates: start: 20090220, end: 20090301
  2. IBUPROFEN [Suspect]
     Indication: DRUG USE FOR UNKNOWN INDICATION
     Dosage: (600 MG TID, [1-1-1]), (600 MG, BID, [0-1-1])
     Dates: start: 20090216, end: 20090216
  3. IBUPROFEN [Suspect]
     Indication: DRUG USE FOR UNKNOWN INDICATION
     Dosage: (600 MG TID, [1-1-1]), (600 MG, BID, [0-1-1])
     Dates: start: 20090217, end: 20090218
  4. XARELTO - RIVAROXABAN 10 MG [Suspect]
     Indication: ANTICOAGULANT THERAPY
     Dosage: (10 MG QD,  [AT 15:00HR])
     Dates: start: 20090219
  5. CEFAZOLIN [Concomitant]
  6. TUTOFUSIN [Concomitant]
  7. METAMIZOLE [Concomitant]
  8. AGGRENOX [Concomitant]
  9. METOPROLOL [Concomitant]
  10. ATACAND /01421601/ [Concomitant]
  11. TORSEMIDE [Concomitant]
  12. PANTOZOL  /01263202/ [Concomitant]
  13. NOVALGIN  /00039501/ [Concomitant]
  14. OXYGESIC [Concomitant]

REACTIONS (5)
  - BLISTER [None]
  - FEMUR FRACTURE [None]
  - HAEMATOMA [None]
  - HAEMOGLOBIN DECREASED [None]
  - OSTEOARTHRITIS [None]
